FAERS Safety Report 7759122-X (Version None)
Quarter: 2011Q3

REPORT INFORMATION
  Report Type: 
  Country: None (occurrence: None)
  Receive Date: 20110919
  Receipt Date: 20110912
  Transmission Date: 20111222
  Serious: Yes (Death, Other)
  Sender: FDA-Public Use
  Company Number: PHHY2011JP76073

PATIENT
  Age: 99 Year
  Sex: Female

DRUGS (7)
  1. ISOSORBIDE MONONITRATE [Concomitant]
  2. LEVOFLOXACIN [Suspect]
     Indication: URINARY TRACT INFECTION
     Dosage: 500 MG, QD
     Route: 048
     Dates: start: 20110818, end: 20110823
  3. CIPROFLOXACIN HCL [Suspect]
     Indication: URINARY TRACT INFECTION
     Dosage: 150 MG, BID
     Route: 048
     Dates: start: 20110823, end: 20110823
  4. ALDACTONE [Concomitant]
  5. MAGMITT KENEI [Concomitant]
  6. RIVASTIGMINE [Suspect]
     Indication: DEMENTIA ALZHEIMER'S TYPE
     Dosage: 4.5 MG, DAILY
     Route: 062
     Dates: start: 20110823, end: 20110823
  7. LASIX [Concomitant]

REACTIONS (12)
  - BLOOD PRESSURE DECREASED [None]
  - DRUG INEFFECTIVE [None]
  - UNRESPONSIVE TO STIMULI [None]
  - MUSCULAR WEAKNESS [None]
  - CEREBRAL INFARCTION [None]
  - FACIAL SPASM [None]
  - MUSCLE TWITCHING [None]
  - OXYGEN SATURATION DECREASED [None]
  - MUSCLE SPASMS [None]
  - RESPIRATORY ARREST [None]
  - EYE MOVEMENT DISORDER [None]
  - GRAND MAL CONVULSION [None]
